FAERS Safety Report 24625114 (Version 3)
Quarter: 2025Q1

REPORT INFORMATION
  Report Type: Spontaneous
  Country: GR (occurrence: GR)
  Receive Date: 20241115
  Receipt Date: 20250220
  Transmission Date: 20250408
  Serious: Yes (Death, Hospitalization)
  Sender: NOVARTIS
  Company Number: GR-002147023-NVSC2024GR220128

PATIENT
  Age: 61 Year
  Sex: Male

DRUGS (1)
  1. SCEMBLIX [Suspect]
     Active Substance: ASCIMINIB HYDROCHLORIDE
     Indication: Chronic myeloid leukaemia
     Dosage: 40 MG, BID
     Route: 048

REACTIONS (3)
  - Cardiomyopathy [Fatal]
  - Renal failure [Fatal]
  - Myocarditis [Fatal]

NARRATIVE: CASE EVENT DATE: 20241101
